FAERS Safety Report 4973375-2 (Version None)
Quarter: 2006Q2

REPORT INFORMATION
  Report Type: 
  Country: None (occurrence: None)
  Receive Date: 20060414
  Receipt Date: 20051130
  Transmission Date: 20061013
  Serious: Yes (Hospitalization)
  Sender: FDA-Public Use
  Company Number: US-MERCK-0512USA00284

PATIENT
  Age: 58 Year
  Sex: Female
  Weight: 75 kg

DRUGS (4)
  1. VIOXX [Suspect]
     Indication: ARTHRITIS
     Route: 048
     Dates: start: 20010301, end: 20040701
  2. VIOXX [Suspect]
     Route: 048
     Dates: start: 20000901
  3. VIOXX [Suspect]
     Indication: ARTHRALGIA
     Route: 048
     Dates: start: 20010301, end: 20040701
  4. VIOXX [Suspect]
     Route: 048
     Dates: start: 20000901

REACTIONS (17)
  - ANGINA UNSTABLE [None]
  - BACK DISORDER [None]
  - BLOOD CREATININE INCREASED [None]
  - CARDIAC DISORDER [None]
  - CORONARY ARTERY DISEASE [None]
  - CYST [None]
  - DIABETES MELLITUS [None]
  - EMOTIONAL DISORDER [None]
  - HAEMATOCRIT DECREASED [None]
  - HAEMOGLOBIN DECREASED [None]
  - HYPERTENSION [None]
  - NEPHROLITHIASIS [None]
  - NERVE INJURY [None]
  - PAIN [None]
  - POLYTRAUMATISM [None]
  - SPINAL DISORDER [None]
  - THROMBOSIS [None]
